FAERS Safety Report 6061027-X (Version None)
Quarter: 2009Q1

REPORT INFORMATION
  Report Type: 
  Country: None (occurrence: None)
  Receive Date: 20090202
  Receipt Date: 20090127
  Transmission Date: 20090719
  Serious: Yes (Other)
  Sender: FDA-Public Use
  Company Number: US-JNJFOC-20090107273

PATIENT
  Age: 75 Year
  Sex: Female

DRUGS (1)
  1. ELMIRON [Suspect]
     Indication: DRUG USE FOR UNKNOWN INDICATION
     Dosage: FOR 3 MONTHS
     Route: 065

REACTIONS (2)
  - BLADDER OPERATION [None]
  - CYSTITIS [None]
